FAERS Safety Report 18453208 (Version 1)
Quarter: 2020Q4

REPORT INFORMATION
  Report Type: Report from Study
  Country: CA (occurrence: CA)
  Receive Date: 20201102
  Receipt Date: 20201102
  Transmission Date: 20210114
  Serious: Yes (Other)
  Sender: FDA-Public Use
  Company Number: CA-PFIZER INC-2020419020

PATIENT
  Age: 6 Year
  Sex: Male

DRUGS (4)
  1. LINEZOLID. [Suspect]
     Active Substance: LINEZOLID
     Indication: OTITIS MEDIA BACTERIAL
     Dosage: UNK
  2. BORIC ACID [Concomitant]
     Active Substance: BORIC ACID
     Indication: MYCOBACTERIUM ABSCESSUS INFECTION
     Dosage: UNK
  3. AMIKACIN. [Suspect]
     Active Substance: AMIKACIN
     Indication: OTITIS MEDIA BACTERIAL
     Dosage: UNK
  4. CLARITHROMYCIN. [Suspect]
     Active Substance: CLARITHROMYCIN
     Indication: OTITIS MEDIA BACTERIAL
     Dosage: UNK

REACTIONS (2)
  - Candida infection [Unknown]
  - Otitis media fungal [Unknown]
